FAERS Safety Report 19795055 (Version 1)
Quarter: 2021Q3

REPORT INFORMATION
  Report Type: Other
  Country: CA (occurrence: CA)
  Receive Date: 20210907
  Receipt Date: 20210907
  Transmission Date: 20211014
  Serious: Yes (Other)
  Sender: FDA-Public Use
  Company Number: CA-CELLTRION INC.-2021CA011879

PATIENT

DRUGS (10)
  1. SYNTHROID [Concomitant]
     Active Substance: LEVOTHYROXINE SODIUM
  2. SALBUTAMOL [Concomitant]
     Active Substance: ALBUTEROL
  3. BENADRYL [Concomitant]
     Active Substance: DIPHENHYDRAMINE HYDROCHLORIDE
     Indication: PREMEDICATION
     Dosage: 50 MG
     Route: 048
  4. TYLENOL [Concomitant]
     Active Substance: ACETAMINOPHEN
     Indication: PREMEDICATION
     Dosage: 650 MG
     Route: 048
  5. LOSEC [Concomitant]
     Active Substance: OMEPRAZOLE
  6. RITUXIMAB. [Suspect]
     Active Substance: RITUXIMAB
     Indication: SCLERODERMA
     Dosage: UNK
     Route: 065
  7. RITUXIMAB. [Suspect]
     Active Substance: RITUXIMAB
     Indication: INTERSTITIAL LUNG DISEASE
     Dosage: 1000 MG
     Route: 042
  8. CODEINE [Concomitant]
     Active Substance: CODEINE
  9. METHYLPREDNISOLONE SODIUM SUCCINATE. [Concomitant]
     Active Substance: METHYLPREDNISOLONE SODIUM SUCCINATE
  10. CIPROFLOXACIN. [Concomitant]
     Active Substance: CIPROFLOXACIN

REACTIONS (4)
  - Asthenia [Unknown]
  - Fatigue [Unknown]
  - Off label use [Unknown]
  - Cardiac dysfunction [Unknown]
